FAERS Safety Report 5012459-X (Version None)
Quarter: 2006Q2

REPORT INFORMATION
  Report Type: 
  Country: None (occurrence: None)
  Receive Date: 20060414
  Receipt Date: 20060116
  Transmission Date: 20061013
  Serious: No
  Sender: FDA-Public Use
  Company Number: 2006SP000275

PATIENT
  Age: 46 Year
  Sex: Female
  Weight: 99.7913 kg

DRUGS (4)
  1. LUNESTA [Suspect]
     Indication: BACK PAIN
     Dosage: 3 MG;HS;ORAL
     Route: 048
     Dates: start: 20060113, end: 20060114
  2. LUNESTA [Suspect]
     Indication: INSOMNIA
     Dosage: 3 MG;HS;ORAL
     Route: 048
     Dates: start: 20060113, end: 20060114
  3. ULTRAM [Suspect]
     Dates: start: 20060113, end: 20060113
  4. PEPCID AC [Concomitant]

REACTIONS (4)
  - DIZZINESS [None]
  - DYSGEUSIA [None]
  - INSOMNIA [None]
  - SOMNOLENCE [None]
